FAERS Safety Report 18158056 (Version 1)
Quarter: 2020Q3

REPORT INFORMATION
  Report Type: Spontaneous
  Country: US (occurrence: US)
  Receive Date: 20200817
  Receipt Date: 20200817
  Transmission Date: 20201103
  Serious: No
  Sender: FDA-Public Use
  Company Number: US-MEDEXUS PHARMA, INC.-2020MED00121

PATIENT
  Age: 40 Year
  Sex: Female
  Weight: 58.96 kg

DRUGS (2)
  1. RASUVO [Suspect]
     Active Substance: METHOTREXATE SODIUM
     Indication: ANKYLOSING SPONDYLITIS
     Dosage: 15 MG ^SAMPLES,^ INJECTED INTO RIGHT THIGH
     Dates: start: 2020, end: 2020
  2. RASUVO [Suspect]
     Active Substance: METHOTREXATE SODIUM
     Dosage: 15 MG ^4 PACK^, INJECTED INTO RIGHT THIGH
     Dates: start: 2020

REACTIONS (6)
  - Accidental exposure to product [Recovered/Resolved]
  - Injection site haemorrhage [Unknown]
  - Product use in unapproved indication [Not Recovered/Not Resolved]
  - Device failure [Recovered/Resolved]
  - Pain [Recovered/Resolved]
  - Burning sensation [Recovered/Resolved]

NARRATIVE: CASE EVENT DATE: 2020
